FAERS Safety Report 8919377 (Version 1)
Quarter: 2012Q4

REPORT INFORMATION
  Report Type: Spontaneous
  Country: CA (occurrence: None)
  Receive Date: 20121114
  Receipt Date: 20121114
  Transmission Date: 20130627
  Serious: Yes (Other)
  Sender: FDA-Public Use
  Company Number: DSA_60834_2012

PATIENT
  Age: 81 Year
  Sex: Male

DRUGS (2)
  1. FLAGYL [Suspect]
     Indication: CLOSTRIDIAL INFECTION
     Dosage: (Df)
     Dates: start: 201206, end: 201206
  2. FLAGYL [Suspect]
     Indication: CLOSTRIDIAL INFECTION
     Dosage: (Df)
     Dates: start: 201206

REACTIONS (3)
  - Clostridial infection [None]
  - Disease recurrence [None]
  - Asthenia [None]
